FAERS Safety Report 4610768-7 (Version None)
Quarter: 2005Q2

REPORT INFORMATION
  Report Type: 
  Country: None (occurrence: None)
  Receive Date: 20050301
  Receipt Date: 20041129
  Transmission Date: 20051028
  Serious: No
  Sender: FDA-Public Use
  Company Number: WAES 0411USA04103

PATIENT
  Sex: Male

DRUGS (1)
  1. ZETIA [Suspect]
     Indication: HYPERCHOLESTEROLAEMIA
     Dosage: 10 MG/DAILY/PO
     Route: 048
     Dates: start: 20041001

REACTIONS (1)
  - HIGH DENSITY LIPOPROTEIN INCREASED [None]
